FAERS Safety Report 10513216 (Version 2)
Quarter: 2014Q4

REPORT INFORMATION
  Report Type: Report from Study
  Country: US (occurrence: US)
  Receive Date: 20141013
  Receipt Date: 20141013
  Transmission Date: 20150528
  Serious: Yes (Other)
  Sender: FDA-Public Use
  Company Number: US-JNJFOC-20140802313

PATIENT
  Age: 55 Year
  Sex: Female

DRUGS (7)
  1. INVOKANA [Suspect]
     Active Substance: CANAGLIFLOZIN
     Indication: PRODUCT USED FOR UNKNOWN INDICATION
     Route: 048
     Dates: start: 20130823, end: 20131031
  2. MULTIPLE VITAMIN [Concomitant]
     Active Substance: VITAMINS
  3. YEAST [Concomitant]
     Active Substance: YEAST
  4. VITAMIN B12 [Concomitant]
     Active Substance: CYANOCOBALAMIN
  5. COENZYME Q10 [Concomitant]
     Active Substance: UBIDECARENONE
  6. KRILL OIL [Concomitant]
     Active Substance: DIETARY SUPPLEMENT
  7. VITAMIN D [Concomitant]
     Active Substance: CHOLECALCIFEROL

REACTIONS (11)
  - Swelling [Not Recovered/Not Resolved]
  - Vulval disorder [Recovering/Resolving]
  - Pain [Recovering/Resolving]
  - Flatulence [Recovering/Resolving]
  - Skin discolouration [Not Recovered/Not Resolved]
  - Hypersensitivity [Recovering/Resolving]
  - Night sweats [Recovering/Resolving]
  - Back pain [Recovering/Resolving]
  - Fungal infection [Recovering/Resolving]
  - Migraine [Recovering/Resolving]
  - Accident [Recovering/Resolving]

NARRATIVE: CASE EVENT DATE: 201309
